FAERS Safety Report 16234188 (Version 1)
Quarter: 2019Q2

REPORT INFORMATION
  Report Type: Spontaneous
  Country: US (occurrence: US)
  Receive Date: 20190320
  Receipt Date: 20190320
  Transmission Date: 20190711
  Serious: Yes (Hospitalization)
  Sender: FDA-Public Use
  Company Number: None

PATIENT
  Age: 72 Year
  Sex: Female

DRUGS (21)
  1. SYNTHROID [Concomitant]
     Active Substance: LEVOTHYROXINE SODIUM
  2. HYDROCO/APAP [Concomitant]
     Active Substance: ACETAMINOPHEN\HYDROCODONE
  3. AZITHROMYCIN ANHYDROUS. [Concomitant]
     Active Substance: AZITHROMYCIN ANHYDROUS
  4. TRIAMT/HCTZ [Concomitant]
     Active Substance: HYDROCHLOROTHIAZIDE\TRIAMTERENE
  5. CLARITHROMYC [Concomitant]
  6. OXYCODONE [Concomitant]
     Active Substance: OXYCODONE
  7. ISOSORB MONO [Concomitant]
     Active Substance: ISOSORBIDE MONONITRATE
  8. METRONIDAZOLE. [Concomitant]
     Active Substance: METRONIDAZOLE
  9. TRAMADOL. [Concomitant]
     Active Substance: TRAMADOL
  10. ADVAIR HFA [Concomitant]
     Active Substance: FLUTICASONE PROPIONATE\SALMETEROL XINAFOATE
  11. CLINDAMYCIN. [Concomitant]
     Active Substance: CLINDAMYCIN
  12. LISINOPRIL. [Concomitant]
     Active Substance: LISINOPRIL
  13. CLOPIDOGREL [Concomitant]
     Active Substance: CLOPIDOGREL BISULFATE
  14. METOPROL SUC [Concomitant]
  15. BACLOFEN. [Concomitant]
     Active Substance: BACLOFEN
  16. REPATHA [Suspect]
     Active Substance: EVOLOCUMAB
     Indication: HYPERCHOLESTEROLAEMIA
     Route: 058
     Dates: start: 20170826
  17. SERTRALINE [Concomitant]
     Active Substance: SERTRALINE HYDROCHLORIDE
  18. TIZANIDINE. [Concomitant]
     Active Substance: TIZANIDINE
  19. CIPROFLOXACIN. [Concomitant]
     Active Substance: CIPROFLOXACIN
  20. ZOLPIDEM [Concomitant]
     Active Substance: ZOLPIDEM\ZOLPIDEM TARTRATE
  21. PREDNISONE. [Concomitant]
     Active Substance: PREDNISONE

REACTIONS (1)
  - Arterial repair [None]

NARRATIVE: CASE EVENT DATE: 20190311
